FAERS Safety Report 12596158 (Version 1)
Quarter: 2016Q3

REPORT INFORMATION
  Report Type: Spontaneous
  Country: US (occurrence: US)
  Receive Date: 20160727
  Receipt Date: 20160727
  Transmission Date: 20161109
  Serious: No
  Sender: FDA-Public Use
  Company Number: US-UNITED THERAPEUTICS-UNT-2015-016768

PATIENT
  Sex: Female

DRUGS (1)
  1. TYVASO [Suspect]
     Active Substance: TREPROSTINIL
     Indication: PULMONARY ARTERIAL HYPERTENSION
     Dosage: 54 ?G, QID
     Dates: start: 20150527

REACTIONS (5)
  - Pain [Unknown]
  - Throat irritation [Unknown]
  - Dizziness [Unknown]
  - Pain in jaw [Unknown]
  - Headache [Unknown]

NARRATIVE: CASE EVENT DATE: 201506
